FAERS Safety Report 17986928 (Version 3)
Quarter: 2021Q1

REPORT INFORMATION
  Report Type: Other
  Country: BE (occurrence: BE)
  Receive Date: 20200707
  Receipt Date: 20210322
  Transmission Date: 20210419
  Serious: Yes (Other)
  Sender: FDA-Public Use
  Company Number: BE-ROCHE-2635614

PATIENT
  Age: 44 Year
  Sex: Male
  Weight: 67 kg

DRUGS (29)
  1. OCRELIZUMAB. [Suspect]
     Active Substance: OCRELIZUMAB
     Indication: PRIMARY PROGRESSIVE MULTIPLE SCLEROSIS
     Dosage: 300 MG/ 250 ML
     Route: 042
     Dates: start: 20190902, end: 20190902
  2. NEURONTIN [Concomitant]
     Active Substance: GABAPENTIN
  3. OCRELIZUMAB. [Suspect]
     Active Substance: OCRELIZUMAB
     Dosage: 600 MG/ 500 ML
     Route: 042
     Dates: start: 20201202, end: 20201202
  4. OXYNORM [Concomitant]
     Active Substance: OXYCODONE HYDROCHLORIDE
  5. MAGNESIUM [Concomitant]
     Active Substance: MAGNESIUM
  6. MIDAZOLAM. [Concomitant]
     Active Substance: MIDAZOLAM
  7. DEPO?MEDROL [Concomitant]
     Active Substance: METHYLPREDNISOLONE ACETATE
  8. INUVAIR [Concomitant]
     Active Substance: BECLOMETHASONE DIPROPIONATE\FORMOTEROL FUMARATE
     Dates: start: 20200118
  9. PARACETAMOL [Concomitant]
     Active Substance: ACETAMINOPHEN
  10. SOLU?MEDROL [Concomitant]
     Active Substance: METHYLPREDNISOLONE SODIUM SUCCINATE
  11. BACLOFEN. [Concomitant]
     Active Substance: BACLOFEN
  12. SATIVEX [Concomitant]
     Active Substance: NABIXIMOLS
  13. TEMESTA EXPIDET [Concomitant]
     Active Substance: LORAZEPAM
  14. NESTROLAN [Concomitant]
  15. KETAMINE [Concomitant]
     Active Substance: KETAMINE
  16. LITICAN [Concomitant]
     Active Substance: ALIZAPRIDE HYDROCHLORIDE
  17. OCRELIZUMAB. [Suspect]
     Active Substance: OCRELIZUMAB
     Dosage: 600 MG/ 500 ML
     Route: 042
     Dates: start: 20200612, end: 20200612
  18. OXYCONTIN [Concomitant]
     Active Substance: OXYCODONE HYDROCHLORIDE
  19. XYLOCAINE [Concomitant]
     Active Substance: LIDOCAINE HYDROCHLORIDE
  20. CHIROCAINE [Concomitant]
     Active Substance: LEVOBUPIVACAINE HYDROCHLORIDE
  21. OCRELIZUMAB. [Suspect]
     Active Substance: OCRELIZUMAB
     Indication: RELAPSING MULTIPLE SCLEROSIS
     Dosage: 300 MG/ 250 ML
     Route: 042
     Dates: start: 20190917, end: 20190917
  22. DAFALGAN CODEINE [Concomitant]
     Active Substance: ACETAMINOPHEN\CODEINE PHOSPHATE
  23. OMEPRAZOLE. [Concomitant]
     Active Substance: OMEPRAZOLE
  24. OXYCODONE [Concomitant]
     Active Substance: OXYCODONE
  25. AERINAZE [Concomitant]
     Active Substance: DESLORATADINE\PSEUDOEPHEDRINE
  26. SIMVASTATINE EG [Concomitant]
     Active Substance: SIMVASTATIN
  27. RIVOTRIL [Concomitant]
     Active Substance: CLONAZEPAM
  28. DOXYCYCLINE. [Concomitant]
     Active Substance: DOXYCYCLINE
  29. LEVOCETIRIZINE [Concomitant]
     Active Substance: LEVOCETIRIZINE

REACTIONS (1)
  - Pneumonia [Recovered/Resolved]

NARRATIVE: CASE EVENT DATE: 20191118
